FAERS Safety Report 7890825-2 (Version None)
Quarter: 2011Q4

REPORT INFORMATION
  Report Type: 
  Country: None (occurrence: None)
  Receive Date: 20111103
  Receipt Date: 20110726
  Transmission Date: 20120403
  Serious: No
  Sender: FDA-Public Use
  Company Number: US-AMGEN-USASP2011031936

PATIENT
  Age: 40 Year
  Sex: Female

DRUGS (5)
  1. LITHIUM CITRATE [Concomitant]
  2. LISINOPRIL [Concomitant]
  3. ENBREL [Suspect]
     Indication: RHEUMATOID ARTHRITIS
     Dosage: 50 MG, QWK
     Route: 058
     Dates: start: 20110601
  4. SEROQUEL [Concomitant]
  5. LEVOTHYROXINE SODIUM [Concomitant]

REACTIONS (5)
  - PYREXIA [None]
  - DRUG INEFFECTIVE [None]
  - RHEUMATOID ARTHRITIS [None]
  - ABDOMINAL DISTENSION [None]
  - WEIGHT INCREASED [None]
